FAERS Safety Report 8765724 (Version 1)
Quarter: 2012Q4

REPORT INFORMATION
  Report Type: 
  Country: US (occurrence: US)
  Receive Date: 20120903
  Receipt Date: 20120903
  Transmission Date: 20130627
  Serious: Yes (Other)
  Sender: FDA-Public Use
  Company Number: US-BAYER-2012-090712

PATIENT
  Age: 52 Year
  Sex: Female
  Weight: 48.98 kg

DRUGS (10)
  1. BETASERON [Suspect]
     Dosage: 0.3 mg, UNK
  2. SINGULAIR [Concomitant]
  3. GABAPENTIN [Concomitant]
  4. FENTANYL [Concomitant]
  5. VALIUM [Concomitant]
  6. BACLOFEN [Concomitant]
  7. FAMOTIDINE [Concomitant]
  8. SULFAZINE [Concomitant]
  9. KEPPRA [Concomitant]
  10. PERCOCET [Concomitant]

REACTIONS (2)
  - Multiple sclerosis relapse [Unknown]
  - Multiple sclerosis [Unknown]
